FAERS Safety Report 24323218 (Version 1)
Quarter: 2024Q3

REPORT INFORMATION
  Report Type: Spontaneous
  Country: US (occurrence: None)
  Receive Date: 20240913
  Receipt Date: 20240913
  Transmission Date: 20241016
  Serious: Yes (Hospitalization)
  Sender: Public
  Company Number: None

PATIENT
  Sex: Female

DRUGS (1)
  1. TERIPARATIDE ACETATE [Suspect]
     Active Substance: TERIPARATIDE ACETATE
     Indication: Osteoporosis
     Dosage: 250MCG/ML DAILY SUBCUTANEOUSLY?
     Route: 058
     Dates: start: 20240103

REACTIONS (2)
  - Abdominal pain [None]
  - Pancreatitis [None]
